FAERS Safety Report 18275068 (Version 8)
Quarter: 2021Q1

REPORT INFORMATION
  Report Type: Spontaneous
  Country: US (occurrence: US)
  Receive Date: 20200916
  Receipt Date: 20210104
  Transmission Date: 20210419
  Serious: Yes (Other)
  Sender: FDA-Public Use
  Company Number: US-PFIZER INC-2020354135

PATIENT
  Age: 65 Year
  Sex: Female
  Weight: 62.14 kg

DRUGS (1)
  1. CHANTIX [Suspect]
     Active Substance: VARENICLINE TARTRATE
     Indication: SMOKING CESSATION THERAPY
     Dosage: UNK, 2X/DAY
     Dates: start: 2019, end: 2019

REACTIONS (9)
  - Agitation [Recovered/Resolved]
  - Malaise [Unknown]
  - Fall [Unknown]
  - Anger [Unknown]
  - Frustration tolerance decreased [Unknown]
  - Craniocerebral injury [Unknown]
  - Upper limb fracture [Unknown]
  - Illness [Unknown]
  - Headache [Recovered/Resolved]

NARRATIVE: CASE EVENT DATE: 2019
